FAERS Safety Report 5217465-8 (Version None)
Quarter: 2006Q4

REPORT INFORMATION
  Report Type: 
  Country: None (occurrence: None)
  Receive Date: 20061130
  Receipt Date: 20060421
  Transmission Date: 20070319
  Serious: Yes (Hospitalization, Other)
  Sender: FDA-Public Use
  Company Number: US_0509121819

PATIENT
  Sex: Male
  Weight: 116.1 kg

DRUGS (3)
  1. ZYPREXA [Suspect]
     Indication: PARANOIA
     Dosage: 500 MG, ORAL
     Route: 048
     Dates: start: 19970901, end: 20030401
  2. ZYPREXA [Suspect]
     Indication: PARANOIA
     Dosage: 500 MG, ORAL
     Route: 048
     Dates: start: 20030401
  3. LITHIUM CARBONATE [Concomitant]

REACTIONS (13)
  - BLOOD CHOLESTEROL INCREASED [None]
  - BLOOD TRIGLYCERIDES INCREASED [None]
  - DIABETES MELLITUS [None]
  - DIABETIC KETOACIDOSIS [None]
  - GLYCOSURIA [None]
  - HYPERGLYCAEMIA [None]
  - HYPERPHAGIA [None]
  - HYPERTENSION [None]
  - POLYDIPSIA [None]
  - POLYURIA [None]
  - PRESCRIBED OVERDOSE [None]
  - VISION BLURRED [None]
  - WEIGHT DECREASED [None]
